FAERS Safety Report 6164585-X (Version None)
Quarter: 2009Q2

REPORT INFORMATION
  Report Type: 
  Country: None (occurrence: None)
  Receive Date: 20090423
  Receipt Date: 20090415
  Transmission Date: 20091009
  Serious: Yes (Hospitalization, Other)
  Sender: FDA-Public Use
  Company Number: GB-ELI_LILLY_AND_COMPANY-GB200811002078

PATIENT
  Sex: Female
  Weight: 105 kg

DRUGS (29)
  1. BYETTA [Suspect]
     Indication: OBESITY
     Dosage: 5 IU, 2/D
     Route: 065
     Dates: start: 20070901
  2. BYETTA [Suspect]
     Dosage: 10 UG, 2/D
     Route: 065
     Dates: start: 20071101
  3. BYETTA [Suspect]
     Dosage: 5 UG, 2/D
     Route: 065
  4. BYETTA [Suspect]
     Dosage: 5 UG IN THE MORNING AND 10 UG IN THE EVENING
     Route: 065
     Dates: start: 20080201, end: 20080502
  5. HUMALOG MIX 75/25 [Concomitant]
     Dosage: 18-25 UNITS IN THE MORNING, 18 UNITS IN THE EVENING
     Route: 065
  6. HUMALOG MIX 75/25 [Concomitant]
     Dosage: 7 IU, 3/D
     Route: 065
     Dates: start: 20081101
  7. HUMALOG MIX 75/25 [Concomitant]
     Dosage: 16 U, EACH MORNING
  8. HUMALOG MIX 75/25 [Concomitant]
     Dosage: 16 U, EACH EVENING
  9. INSULIN [Concomitant]
     Dosage: UNK, UNKNOWN
     Route: 065
  10. GLICLAZIDE [Concomitant]
     Dosage: 60 MG, 2/D
     Route: 048
  11. GLICLAZIDE [Concomitant]
     Dosage: 90 MG, DAILY (1/D)
     Route: 048
  12. NOVOLOG [Concomitant]
     Dosage: 22 UNITS IN THE MORNING AND 20 UNITS IN THE EVENING
     Route: 065
     Dates: start: 20080501
  13. NOVOLOG [Concomitant]
     Dosage: 26 IU, 2/D
     Route: 065
     Dates: start: 20080529, end: 20080801
  14. NOVOLOG [Concomitant]
     Dosage: 25-32 UNITS IN THE MORNING AND 50 UNITS IN THE EVENING
     Route: 065
     Dates: start: 20080801, end: 20080827
  15. NOVOLOG [Concomitant]
     Dates: start: 20080801, end: 20080801
  16. ASPIRIN [Concomitant]
     Dosage: 75 MG, DAILY (1/D)
     Route: 048
     Dates: end: 20080827
  17. LIPITOR [Concomitant]
     Dosage: 20 MG, DAILY (1/D)
     Route: 048
  18. LIPITOR [Concomitant]
     Dosage: 40 MG, DAILY (1/D)
     Route: 048
     Dates: start: 20080213
  19. LIPITOR [Concomitant]
     Dosage: 20 MG, DAILY (1/D)
     Route: 048
  20. LIPITOR [Concomitant]
     Dosage: UNK, UNKNOWN
     Route: 065
  21. LOSARTAN POTASSIUM [Concomitant]
     Dosage: 100 MG, DAILY (1/D)
     Route: 048
  22. CREON [Concomitant]
     Dosage: 1 25,000 CAPSULE, BREAKFAST, LUNCH AND EVENING MEAL AND 1 CAPSULE 10,000 MID MORNING AND BEDTIME
     Route: 065
  23. CREON [Concomitant]
     Dosage: 2 D/F, EACH MORNING
  24. CREON [Concomitant]
     Dosage: 3 D/F, OTHER
  25. CREON [Concomitant]
     Dosage: 3 D/F, EACH EVENING
  26. NYTOL /00000402/ [Concomitant]
     Dosage: 1 D/F, EACH EVENING
     Route: 065
  27. NEBIVOLOL HCL [Concomitant]
  28. LANTUS [Concomitant]
  29. ATORVASTATIN [Concomitant]
     Dosage: 20 MG, QOD

REACTIONS (12)
  - ABDOMINAL PAIN [None]
  - BLOOD GLUCOSE FLUCTUATION [None]
  - DYSPNOEA [None]
  - ERYTHEMA NODOSUM [None]
  - JAUNDICE CHOLESTATIC [None]
  - LIPIDS INCREASED [None]
  - MALAISE [None]
  - NAUSEA [None]
  - PANCREATIC CARCINOMA [None]
  - PRURITUS [None]
  - SOMNOLENCE [None]
  - WEIGHT DECREASED [None]
